FAERS Safety Report 9444127 (Version 1)
Quarter: 2013Q3

REPORT INFORMATION
  Report Type: Spontaneous
  Country: US (occurrence: None)
  Receive Date: 20130806
  Receipt Date: 20130806
  Transmission Date: 20140515
  Serious: Yes (Other)
  Sender: FDA-Public Use
  Company Number: None

PATIENT
  Age: 53 Year
  Sex: Female

DRUGS (1)
  1. COPAXONE [Suspect]
     Indication: RELAPSING-REMITTING MULTIPLE SCLEROSIS
     Dosage: 20MG?1 SHORT PER DAY?ONCE DAILY?INJECTION
     Dates: start: 2010, end: 20130710

REACTIONS (11)
  - Pain [None]
  - Feeling hot [None]
  - Hyperhidrosis [None]
  - Nausea [None]
  - Vomiting [None]
  - Feeling cold [None]
  - Chills [None]
  - Fatigue [None]
  - Lethargy [None]
  - Hypotension [None]
  - Apparent death [None]
